FAERS Safety Report 6604813-7 (Version None)
Quarter: 2010Q1

REPORT INFORMATION
  Report Type: 
  Country: None (occurrence: None)
  Receive Date: 20100226
  Receipt Date: 20100219
  Transmission Date: 20100710
  Serious: Yes (Hospitalization)
  Sender: FDA-Public Use
  Company Number: DE-ROCHE-686941

PATIENT
  Sex: Female
  Weight: 78 kg

DRUGS (3)
  1. BEVACIZUMAB [Suspect]
     Indication: BREAST CANCER
     Dosage: FORM: SOLUTION AS PER PROTOCOL LAST DOSE PRIOR TO SAE: 26 JAN 2010
     Route: 042
     Dates: start: 20100126, end: 20100216
  2. EPIRUBICIN [Suspect]
     Indication: BREAST CANCER
     Dosage: LAST DOSE PRIOR TO SAE: 26 JAN 2010
     Route: 042
     Dates: start: 20100126, end: 20100216
  3. CYCLOPHOSPHAMIDE [Suspect]
     Indication: BREAST CANCER
     Dosage: LAST DOSE PRIOR TO SAE: 26 JAN 2010
     Route: 042
     Dates: start: 20100126, end: 20100216

REACTIONS (1)
  - PLEURAL EFFUSION [None]
